FAERS Safety Report 24595854 (Version 15)
Quarter: 2025Q4

REPORT INFORMATION
  Report Type: Report from Study
  Country: EU (occurrence: EU)
  Receive Date: 20241109
  Receipt Date: 20251206
  Transmission Date: 20260117
  Serious: Yes (Hospitalization)
  Sender: IPSEN BIOPHARMACEUTICALS, INC.
  Company Number: EU-IPSEN Group, Research and Development-2024-20464

PATIENT
  Age: 75 Year
  Sex: Male

DRUGS (33)
  1. LANREOTIDE ACETATE [Suspect]
     Active Substance: LANREOTIDE ACETATE
     Indication: Endocrine neoplasm malignant
     Dosage: FREQUENCY: AS PER PRESCRIPTION
     Route: 058
  2. LANREOTIDE ACETATE [Suspect]
     Active Substance: LANREOTIDE ACETATE
     Dosage: FREQUENCY: AS PER PRESCRIPTION
     Route: 058
  3. LANREOTIDE ACETATE [Suspect]
     Active Substance: LANREOTIDE ACETATE
     Dosage: FREQUENCY: AS PER PRESCRIPTION
     Route: 058
  4. LANREOTIDE ACETATE [Suspect]
     Active Substance: LANREOTIDE ACETATE
     Dosage: FREQUENCY: AS PER PRESCRIPTION
     Route: 058
  5. LANREOTIDE ACETATE [Suspect]
     Active Substance: LANREOTIDE ACETATE
     Dosage: FREQUENCY: AS PER PRESCRIPTION
     Route: 058
  6. LANREOTIDE ACETATE [Suspect]
     Active Substance: LANREOTIDE ACETATE
     Dosage: FREQUENCY: AS PER PRESCRIPTION
     Route: 058
  7. LANREOTIDE ACETATE [Suspect]
     Active Substance: LANREOTIDE ACETATE
     Dosage: FREQUENCY: AS PER PRESCRIPTION
     Route: 058
  8. LANREOTIDE ACETATE [Suspect]
     Active Substance: LANREOTIDE ACETATE
     Dosage: FREQUENCY: AS PER PRESCRIPTION
     Route: 058
  9. LANREOTIDE ACETATE [Suspect]
     Active Substance: LANREOTIDE ACETATE
     Dosage: FREQUENCY: AS PER PRESCRIPTION
     Route: 058
  10. LANREOTIDE ACETATE [Suspect]
     Active Substance: LANREOTIDE ACETATE
     Dosage: FREQUENCY: AS PER PRESCRIPTION
     Route: 058
  11. LANREOTIDE ACETATE [Suspect]
     Active Substance: LANREOTIDE ACETATE
     Dosage: FREQUENCY: AS PER PRESCRIPTION
     Route: 058
  12. LANREOTIDE ACETATE [Suspect]
     Active Substance: LANREOTIDE ACETATE
     Dosage: FREQUENCY: AS PER PRESCRIPTION
     Route: 058
  13. LANREOTIDE ACETATE [Suspect]
     Active Substance: LANREOTIDE ACETATE
     Dosage: FREQUENCY: AS PER PRESCRIPTION
     Route: 058
  14. LANREOTIDE ACETATE [Suspect]
     Active Substance: LANREOTIDE ACETATE
     Dosage: FREQUENCY: AS PER PRESCRIPTION
     Route: 058
     Dates: start: 20251202
  15. LANREOTIDE ACETATE [Suspect]
     Active Substance: LANREOTIDE ACETATE
     Dosage: FREQUENCY: AS PER PRESCRIPTION
     Route: 058
  16. LANREOTIDE ACETATE [Suspect]
     Active Substance: LANREOTIDE ACETATE
     Dosage: FREQUENCY: AS PER PRESCRIPTION
     Route: 058
  17. ALLOPURINOL [Concomitant]
     Active Substance: ALLOPURINOL
  18. CLOPIDOGREL [Concomitant]
     Active Substance: CLOPIDOGREL BISULFATE
  19. FAMOTIDINE [Concomitant]
     Active Substance: FAMOTIDINE
  20. QUETIAPINE [Concomitant]
     Active Substance: QUETIAPINE
  21. MIRTAZAPINE [Concomitant]
     Active Substance: MIRTAZAPINE
  22. VENLABLUE XL [Concomitant]
  23. CARVEDILOL [Concomitant]
     Active Substance: CARVEDILOL
  24. SPIRONOLACTONE [Concomitant]
     Active Substance: SPIRONOLACTONE
  25. ZOPICLONE [Concomitant]
     Active Substance: ZOPICLONE
  26. SACUBITRIL [Concomitant]
     Active Substance: SACUBITRIL
  27. VALSARTAN [Concomitant]
     Active Substance: VALSARTAN
  28. TEMAZEPAM [Concomitant]
     Active Substance: TEMAZEPAM
  29. CREON [Concomitant]
     Active Substance: PANCRELIPASE AMYLASE\PANCRELIPASE LIPASE\PANCRELIPASE PROTEASE
     Dosage: WITH SNACK
  30. CREON [Concomitant]
     Active Substance: PANCRELIPASE AMYLASE\PANCRELIPASE LIPASE\PANCRELIPASE PROTEASE
     Dosage: T.D.S
  31. CHOLESTROGEL [Concomitant]
  32. ROSUVASTATIN [Concomitant]
     Active Substance: ROSUVASTATIN
  33. LOPERAMIDE [Concomitant]
     Active Substance: LOPERAMIDE

REACTIONS (14)
  - Diarrhoea [Not Recovered/Not Resolved]
  - Weight decreased [Recovering/Resolving]
  - Diarrhoea [Recovering/Resolving]
  - Eye contusion [Recovering/Resolving]
  - Fall [Recovering/Resolving]
  - Skin laceration [Recovering/Resolving]
  - Diarrhoea [Not Recovered/Not Resolved]
  - Diarrhoea [Recovering/Resolving]
  - Eating disorder [Not Recovered/Not Resolved]
  - Diarrhoea [Unknown]
  - Fatigue [Not Recovered/Not Resolved]
  - Off label use [Unknown]
  - Fatigue [Not Recovered/Not Resolved]
  - Decreased appetite [Not Recovered/Not Resolved]

NARRATIVE: CASE EVENT DATE: 20240912
